FAERS Safety Report 25337184 (Version 1)
Quarter: 2025Q2

REPORT INFORMATION
  Report Type: Spontaneous
  Country: US (occurrence: US)
  Receive Date: 20250520
  Receipt Date: 20250520
  Transmission Date: 20250716
  Serious: Yes (Hospitalization)
  Sender: JUBILANT
  Company Number: US-JUBILANT CADISTA PHARMACEUTICALS-2025JUB00064

PATIENT
  Sex: Male
  Weight: 69.388 kg

DRUGS (3)
  1. TERAZOSIN [Suspect]
     Active Substance: TERAZOSIN HYDROCHLORIDE
     Indication: Hypertension
     Dosage: 5 MG, ONCE DAILY
     Route: 048
     Dates: start: 202504
  2. ASPIRIN [Concomitant]
     Active Substance: ASPIRIN
     Dosage: ONCE DAILY
  3. OMEPRAZOLE [Concomitant]
     Active Substance: OMEPRAZOLE
     Dosage: AT NIGHT

REACTIONS (4)
  - Volume blood decreased [Not Recovered/Not Resolved]
  - Hypotension [Not Recovered/Not Resolved]
  - Chest pain [Not Recovered/Not Resolved]
  - Suspected product quality issue [Not Recovered/Not Resolved]

NARRATIVE: CASE EVENT DATE: 20250101
